FAERS Safety Report 6435088-X (Version None)
Quarter: 2009Q4

REPORT INFORMATION
  Report Type: 
  Country: None (occurrence: None)
  Receive Date: 20091110
  Receipt Date: 20091028
  Transmission Date: 20100525
  Serious: Yes (Hospitalization, Other)
  Sender: FDA-Public Use
  Company Number: US-PFIZER INC-2009290032

PATIENT
  Age: 34 Year
  Sex: Female

DRUGS (11)
  1. VORICONAZOLE [Suspect]
     Indication: BRONCHOPULMONARY ASPERGILLOSIS
     Dosage: 200 MG, 2X/DAY
     Route: 048
  2. TACROLIMUS [Concomitant]
     Dosage: 0.5 MG ONCE DAILY
     Route: 048
  3. PLAVIX [Concomitant]
     Dosage: 75 MG, 1X/DAY
     Route: 048
  4. PREDNISONE [Concomitant]
     Dosage: 5 MG, 1X/DAY
     Route: 048
  5. ACETYLSALICYLIC ACID [Concomitant]
     Dosage: 81 MG, 1X/DAY
     Route: 048
  6. MYCOPHENOLATE MOFETIL [Concomitant]
     Dosage: 500 MG, 2X/DAY
     Route: 048
  7. FLORINEF [Concomitant]
     Dosage: 0.1 MG, 1X/DAY
     Route: 048
  8. VALGANCICLOVIR [Concomitant]
     Dosage: 450 MG, 1X/DAY
     Route: 048
  9. MAGNESIUM OXIDE [Concomitant]
     Dosage: 800 MG, 3X/DAY
     Route: 048
  10. OXYCONTIN [Concomitant]
     Dosage: 10 MG, 2X/DAY
     Route: 048
  11. NEURONTIN [Concomitant]
     Dosage: 300 MG, 1X/DAY
     Route: 048

REACTIONS (2)
  - HEPATIC ENZYME INCREASED [None]
  - MYOSITIS [None]
